FAERS Safety Report 7287316-9 (Version None)
Quarter: 2011Q1

REPORT INFORMATION
  Report Type: 
  Country: None (occurrence: None)
  Receive Date: 20110211
  Receipt Date: 20110131
  Transmission Date: 20110831
  Serious: Yes (Other)
  Sender: FDA-Public Use
  Company Number: CA-JNJFOC-20090907936

PATIENT
  Sex: Male
  Weight: 75 kg

DRUGS (3)
  1. REMICADE [Suspect]
     Indication: CROHN'S DISEASE
     Dosage: 6TH INFUSION
     Route: 042
  2. REMICADE [Suspect]
     Dosage: 7TH INFUSION
     Route: 042
  3. REMICADE [Suspect]
     Route: 042

REACTIONS (5)
  - GAIT DISTURBANCE [None]
  - NAUSEA [None]
  - DIARRHOEA [None]
  - ARTHRALGIA [None]
  - VOMITING [None]
